FAERS Safety Report 21341581 (Version 1)
Quarter: 2022Q3

REPORT INFORMATION
  Report Type: Spontaneous
  Country: US (occurrence: None)
  Receive Date: 20220915
  Receipt Date: 20220915
  Transmission Date: 20221027
  Serious: No
  Sender: FDA-Public Use
  Company Number: None

PATIENT
  Age: 62 Year
  Sex: Female
  Weight: 49.5 kg

DRUGS (6)
  1. OCTAGAM IMMUNE GLOBULIN (HUMAN) [Suspect]
     Active Substance: HUMAN IMMUNOGLOBULIN G
     Indication: Pemphigus
     Route: 042
  2. OCTAGAM IMMUNE GLOBULIN (HUMAN) [Suspect]
     Active Substance: HUMAN IMMUNOGLOBULIN G
     Indication: Pemphigus
     Route: 042
  3. Saline Chloride 0.9% [Concomitant]
  4. Methylprednisolone 10gm [Concomitant]
  5. Diphenhydramine 25 MG [Concomitant]
  6. Acetaminophen 650mg [Concomitant]

REACTIONS (4)
  - Malaise [None]
  - Fatigue [None]
  - Malaise [None]
  - Rash [None]

NARRATIVE: CASE EVENT DATE: 20220910
